FAERS Safety Report 9693888 (Version 1)
Quarter: 2013Q4

REPORT INFORMATION
  Report Type: Spontaneous
  Country: CH (occurrence: CH)
  Receive Date: 20131118
  Receipt Date: 20131118
  Transmission Date: 20140711
  Serious: Yes (Hospitalization, Other)
  Sender: FDA-Public Use
  Company Number: CH-PFIZER INC-2013327584

PATIENT
  Age: 33 Year
  Sex: Female

DRUGS (3)
  1. LYRICA [Suspect]
     Indication: MULTIPLE SCLEROSIS
     Dosage: UNK
     Dates: end: 201212
  2. SIRDALUD [Suspect]
     Indication: MULTIPLE SCLEROSIS
     Dosage: 2 MG, 1X/DAY
     Dates: start: 2012, end: 20130713
  3. LIORESAL ^CIBA-GEIGY^ [Suspect]
     Dosage: 0.5 MG, 1X/DAY
     Dates: start: 20130714

REACTIONS (5)
  - Off label use [Unknown]
  - Haemorrhage [Unknown]
  - Premature separation of placenta [Unknown]
  - Anaemia of pregnancy [Unknown]
  - Streptococcal infection [Unknown]
